FAERS Safety Report 8462941 (Version 2)
Quarter: 2013Q2

REPORT INFORMATION
  Report Type: Spontaneous
  Country: US (occurrence: US)
  Receive Date: 20120316
  Receipt Date: 20130621
  Transmission Date: 20140414
  Serious: Yes (Hospitalization, Other)
  Sender: FDA-Public Use
  Company Number: US-PFIZER INC-2012067229

PATIENT
  Age: 38 Year
  Sex: Female

DRUGS (37)
  1. DILANTIN [Suspect]
     Indication: CONVULSION
     Dosage: 100 MG, 3X/DAY
     Route: 042
     Dates: start: 20100524, end: 20100525
  2. DILANTIN [Suspect]
     Indication: CONVULSION
     Dosage: 100 MG, 3X/DAY
     Route: 048
     Dates: start: 20100525, end: 20100526
  3. DILANTIN [Suspect]
     Dosage: 200 MG, 2X/DAY
     Route: 048
     Dates: start: 20100526, end: 20100623
  4. DIPRIVAN [Concomitant]
     Dosage: 10 MG, UNK
     Route: 042
     Dates: start: 20100523, end: 20100523
  5. CARDENE [Concomitant]
     Dosage: 25 MG, UNK
     Route: 042
     Dates: start: 20100523, end: 20100523
  6. VICODIN [Concomitant]
     Dosage: (5/500MG) ONE TABLET FOR EVERY FOUR HOURS
     Route: 048
     Dates: start: 20100524, end: 20100524
  7. ZOFRAN [Concomitant]
     Indication: NAUSEA
     Dosage: 4 MG, 4X/DAY
     Route: 042
     Dates: start: 20100524, end: 20100602
  8. ZOFRAN [Concomitant]
     Indication: VOMITING
  9. PHENYLEPHRINE [Concomitant]
     Dosage: 40 MG, UNK
     Route: 042
     Dates: start: 20100524, end: 20100529
  10. LABETALOL [Concomitant]
     Dosage: 20-40MG, EVERY FOUR HOURS
     Route: 042
     Dates: start: 20100525, end: 20100530
  11. LABETALOL [Concomitant]
     Dosage: 10 MG, EVERY FOUR HOURS
     Route: 042
     Dates: start: 20100530, end: 20100531
  12. PERIDEX [Concomitant]
     Dosage: 15 ML, 2X/DAY
     Route: 048
     Dates: start: 20100524, end: 20100529
  13. NIMOTOP [Concomitant]
     Dosage: 60 MG, EVERY FOUR HOURS
     Route: 048
     Dates: start: 20100524, end: 20100602
  14. PHENERGAN [Concomitant]
     Indication: NAUSEA
     Dosage: 12.5 MG, EVERY FOUR HOURS
     Route: 042
     Dates: start: 20100524, end: 20100602
  15. PHENERGAN [Concomitant]
     Indication: VOMITING
  16. PROTONIX [Concomitant]
     Dosage: 40 MG, UNK
     Route: 042
     Dates: start: 20100524, end: 20100526
  17. MORPHINE [Concomitant]
     Indication: PAIN
     Dosage: 2 MG, UNK
     Route: 042
     Dates: start: 20100524, end: 20100526
  18. NARCAN [Concomitant]
     Dosage: 0.4 MG, UNK
     Route: 042
     Dates: start: 20100524, end: 20100526
  19. APRESOLINE [Concomitant]
     Dosage: 10 MG, EVERY TWO HOURS AS NEEDED
     Route: 042
     Dates: start: 20100525, end: 20100531
  20. BENADRYL [Concomitant]
     Dosage: 25 MG, 4X/DAY
     Route: 048
     Dates: start: 20100525, end: 20100601
  21. NORCO [Concomitant]
     Indication: PAIN
     Dosage: (10/325) MG, 1-2 TABLETS ORALLY FOR EVERY FOUR HOURS
     Route: 048
     Dates: start: 20100525, end: 20100601
  22. ZESTRIL [Concomitant]
     Dosage: 5 MG, 1X/DAY
     Route: 048
     Dates: start: 20100528, end: 20100531
  23. IBUPROFEN [Concomitant]
     Indication: PAIN
     Dosage: 600 MG, 3X/DAY
     Route: 048
     Dates: start: 20100525, end: 20100526
  24. IBUPROFEN [Concomitant]
     Indication: PYREXIA
  25. NORVASC [Concomitant]
     Indication: HYPERTENSION
     Dosage: 10 MG, 1X/DAY
     Route: 048
     Dates: start: 20100526, end: 20100602
  26. ZANTAC [Concomitant]
     Indication: GASTROOESOPHAGEAL REFLUX DISEASE
     Dosage: 150 MG, 2X/DAY
     Route: 048
     Dates: start: 20100526, end: 20100602
  27. MOTRIN [Concomitant]
     Dosage: 800 MG, 3X/DAY
     Route: 048
     Dates: start: 20100526, end: 20100531
  28. FENTANYL [Concomitant]
     Indication: PAIN
     Dosage: 50 UG, EVERY ONE HOUR
     Route: 042
     Dates: start: 20100526, end: 20100526
  29. TORADOL [Concomitant]
     Dosage: 30 MG, 4X/DAY
     Route: 042
     Dates: start: 20100526, end: 20100528
  30. COLACE [Concomitant]
     Dosage: 10 MG, 2X/DAY
     Route: 048
     Dates: start: 20100527, end: 20100527
  31. SURFAK STOOL SOFTENER [Concomitant]
     Indication: GASTROINTESTINAL DISORDER
     Dosage: 240 MG, 2X/DAY
     Route: 048
     Dates: start: 20100527, end: 20100602
  32. SENOKOT [Concomitant]
     Dosage: 17.2 MG, 1X/DAY
     Route: 048
     Dates: start: 20100527, end: 20100531
  33. DILAUDID [Concomitant]
     Indication: PAIN
     Dosage: 0.5 MG, AS NEEDED (EVERY THREE HOURS)
     Route: 042
     Dates: start: 20100530, end: 20100531
  34. DILAUDID [Concomitant]
     Dosage: 1 MG, AS NEEDED (EVERY THREE HOURS)
     Route: 042
     Dates: start: 20100531, end: 20100601
  35. DILAUDID [Concomitant]
     Dosage: 2 MG, AS NEEDED (EVERY FOUR HOURS)
     Route: 042
     Dates: start: 20100601, end: 20100601
  36. BENADRYL [Concomitant]
     Dosage: 12.5 MG, UNK
     Route: 042
     Dates: start: 20100601, end: 20100601
  37. DURAGESIC [Concomitant]
     Dosage: 25 UG, FOR EVERY 72 HOURS
     Route: 062
     Dates: start: 20100601

REACTIONS (1)
  - Stevens-Johnson syndrome [Recovering/Resolving]
